FAERS Safety Report 15243582 (Version 4)
Quarter: 2019Q2

REPORT INFORMATION
  Report Type: Spontaneous
  Country: US (occurrence: US)
  Receive Date: 20180806
  Receipt Date: 20190501
  Transmission Date: 20190711
  Serious: No
  Sender: FDA-Public Use
  Company Number: US-PFIZER INC-2018315832

PATIENT
  Age: 72 Year
  Sex: Male
  Weight: 71.21 kg

DRUGS (4)
  1. TOPAMAX [Concomitant]
     Active Substance: TOPIRAMATE
     Dosage: UNK
  2. LYRICA [Suspect]
     Active Substance: PREGABALIN
     Dosage: 100 MG, 3X/DAY
     Route: 048
     Dates: start: 20180701, end: 20181028
  3. LYRICA [Suspect]
     Active Substance: PREGABALIN
     Indication: TRIGEMINAL NEURALGIA
     Dosage: 75 MG, 3X/DAY
     Route: 048
     Dates: start: 20180628, end: 20180630
  4. LISINOPRIL. [Concomitant]
     Active Substance: LISINOPRIL
     Indication: HYPERTENSION
     Dosage: 40 MG, 1X/DAY
     Route: 048
     Dates: start: 201611

REACTIONS (5)
  - Drug ineffective [Not Recovered/Not Resolved]
  - Aggression [Unknown]
  - Skin injury [Unknown]
  - Crying [Unknown]
  - Weight decreased [Unknown]

NARRATIVE: CASE EVENT DATE: 201611
